FAERS Safety Report 6008006-6 (Version None)
Quarter: 2008Q4

REPORT INFORMATION
  Report Type: 
  Country: None (occurrence: None)
  Receive Date: 20081217
  Receipt Date: 20080627
  Transmission Date: 20090506
  Serious: No
  Sender: FDA-Public Use
  Company Number: US-ASTRAZENECA-2008UW12969

PATIENT
  Age: 45 Year
  Sex: Male
  Weight: 81.7 kg

DRUGS (7)
  1. CRESTOR [Suspect]
     Indication: BLOOD CHOLESTEROL INCREASED
     Dates: start: 20080601
  2. LISINOPRIL [Concomitant]
  3. PLAVIX [Concomitant]
  4. DIAZEPAM [Concomitant]
  5. NITROGLYCERIN SL [Concomitant]
  6. METHADONE HCL [Concomitant]
  7. HYDROCODONE BITARTRATE [Concomitant]

REACTIONS (2)
  - DYSURIA [None]
  - MYALGIA [None]
